FAERS Safety Report 14628826 (Version 1)
Quarter: 2018Q1

REPORT INFORMATION
  Report Type: Spontaneous
  Country: FR (occurrence: FR)
  Receive Date: 20180313
  Receipt Date: 20180313
  Transmission Date: 20180509
  Serious: Yes (Disabling, Other)
  Sender: FDA-Public Use
  Company Number: FR-MERCK KGAA-2043567

PATIENT
  Age: 40 Year
  Sex: Female

DRUGS (1)
  1. NOVOTHYROX [Suspect]
     Active Substance: LEVOTHYROXINE SODIUM
     Indication: PRODUCT USED FOR UNKNOWN INDICATION
     Dates: start: 2017

REACTIONS (22)
  - Social avoidant behaviour [None]
  - Sluggishness [None]
  - Loss of personal independence in daily activities [None]
  - Dysstasia [None]
  - Fatigue [None]
  - Myalgia [None]
  - Somnolence [None]
  - Arthralgia [None]
  - Mood altered [None]
  - Self esteem decreased [None]
  - Malaise [None]
  - Weight increased [None]
  - Gastrointestinal disorder [None]
  - Personality disorder [None]
  - Feelings of worthlessness [None]
  - Irritability [None]
  - Migraine [None]
  - Depression [None]
  - Loss of libido [None]
  - Impaired work ability [None]
  - Alopecia [None]
  - Personal relationship issue [None]

NARRATIVE: CASE EVENT DATE: 201702
